FAERS Safety Report 9365435 (Version 3)
Quarter: 2014Q2

REPORT INFORMATION
  Report Type: Spontaneous
  Country: US (occurrence: US)
  Receive Date: 20130625
  Receipt Date: 20140624
  Transmission Date: 20141212
  Serious: No
  Sender: FDA-Public Use
  Company Number: US-ASTRAZENECA-2012SE83425

PATIENT
  Age: 49 Year
  Sex: Male
  Weight: 102.1 kg

DRUGS (4)
  1. SYMBICORT PMDI [Suspect]
     Indication: CHRONIC OBSTRUCTIVE PULMONARY DISEASE
     Dosage: 160/4.5 MCG , AS NEEDED
     Route: 055
     Dates: start: 2011
  2. SYMBICORT PMDI [Suspect]
     Indication: CHRONIC OBSTRUCTIVE PULMONARY DISEASE
     Dosage: 160/4.5 MCG , 1 PUFF, TWO TIMES A DAY
     Route: 055
     Dates: start: 201207
  3. SYMBICORT PMDI [Suspect]
     Indication: CHRONIC OBSTRUCTIVE PULMONARY DISEASE
     Dosage: 160/4.5 MCG , 1 PUFF, TWO TIMES A DAY
     Route: 055
     Dates: start: 20121015
  4. SYMBICORT PMDI [Suspect]
     Indication: CHRONIC OBSTRUCTIVE PULMONARY DISEASE
     Dosage: 160/4.5 MCG , 2 PUFF, BID
     Route: 055
     Dates: start: 2010

REACTIONS (8)
  - Dyspnoea [Unknown]
  - Chest discomfort [Unknown]
  - Heart rate increased [Unknown]
  - Off label use [Unknown]
  - Device misuse [Unknown]
  - Circumstance or information capable of leading to medication error [Unknown]
  - Intentional product misuse [Unknown]
  - Drug dose omission [Unknown]
